FAERS Safety Report 4341354-4 (Version None)
Quarter: 2004Q2

REPORT INFORMATION
  Report Type: 
  Country: None (occurrence: None)
  Receive Date: 20040412
  Receipt Date: 20040412
  Transmission Date: 20050107
  Serious: Yes (Hospitalization)
  Sender: FDA-Public Use
  Company Number: ENTC2004-0039(0)

PATIENT
  Age: 87 Year
  Weight: 63.49 kg

DRUGS (4)
  1. STALEVO 50 [Suspect]
     Indication: PARKINSON'S DISEASE
     Dosage: 100 MG/ 25 MG/ 200 MG THREE TIMES A DAY, ORAL
     Route: 048
     Dates: start: 20031001, end: 20031201
  2. PREVACID [Concomitant]
  3. LASIX [Concomitant]
  4. CELEXA [Concomitant]

REACTIONS (4)
  - DYSPEPSIA [None]
  - NAUSEA [None]
  - VOMITING [None]
  - WEIGHT DECREASED [None]
